FAERS Safety Report 11781180 (Version 6)
Quarter: 2019Q1

REPORT INFORMATION
  Report Type: Spontaneous
  Country: US (occurrence: US)
  Receive Date: 20151126
  Receipt Date: 20190320
  Transmission Date: 20190417
  Serious: Yes (Other)
  Sender: FDA-Public Use
  Company Number: US-PFIZER INC-2015393956

PATIENT
  Age: 60 Year
  Sex: Female
  Weight: 78.46 kg

DRUGS (7)
  1. METFORMIN HCL [Suspect]
     Active Substance: METFORMIN HYDROCHLORIDE
     Indication: GLYCOSYLATED HAEMOGLOBIN INCREASED
     Dosage: 0.5 DF, 2X/DAY
     Route: 048
     Dates: start: 201807
  2. LEVOTHYROXINE. [Concomitant]
     Active Substance: LEVOTHYROXINE
     Indication: THYROID DISORDER
     Dosage: 75 UG, 1X/DAY
     Route: 048
     Dates: start: 20180823
  3. BOSULIF [Suspect]
     Active Substance: BOSUTINIB MONOHYDRATE
     Dosage: UNK
  4. ZOFRAN [Concomitant]
     Active Substance: ONDANSETRON HYDROCHLORIDE
     Indication: NAUSEA
     Dosage: 10 MG, AS NEEDED
     Route: 060
  5. BOSULIF [Suspect]
     Active Substance: BOSUTINIB MONOHYDRATE
     Indication: CHRONIC MYELOID LEUKAEMIA
     Dosage: 500 MG, 1X/DAY
     Route: 048
     Dates: start: 20131113
  6. BOSULIF [Suspect]
     Active Substance: BOSUTINIB MONOHYDRATE
     Dosage: 500 MG, DAILY
     Route: 048
     Dates: start: 20131113
  7. BOSULIF [Suspect]
     Active Substance: BOSUTINIB MONOHYDRATE
     Dosage: 500 MG, 1X/DAY
     Route: 048
     Dates: start: 20131113

REACTIONS (12)
  - Dyspnoea [Unknown]
  - Therapeutic response unexpected [Unknown]
  - Product label issue [Unknown]
  - Arthralgia [Unknown]
  - Narcotic bowel syndrome [Unknown]
  - Diarrhoea [Not Recovered/Not Resolved]
  - Vomiting [Not Recovered/Not Resolved]
  - Weight increased [Not Recovered/Not Resolved]
  - Nausea [Not Recovered/Not Resolved]
  - Thyroid disorder [Not Recovered/Not Resolved]
  - Bone disorder [Unknown]
  - Bone marrow disorder [Not Recovered/Not Resolved]

NARRATIVE: CASE EVENT DATE: 20131119
